FAERS Safety Report 18441612 (Version 3)
Quarter: 2021Q1

REPORT INFORMATION
  Report Type: Spontaneous
  Country: US (occurrence: US)
  Receive Date: 20201029
  Receipt Date: 20210111
  Transmission Date: 20210419
  Serious: Yes (Hospitalization)
  Sender: FDA-Public Use
  Company Number: US-PFIZER INC-2020419257

PATIENT
  Age: 55 Year
  Sex: Male

DRUGS (1)
  1. XELJANZ [Suspect]
     Active Substance: TOFACITINIB CITRATE
     Indication: COLITIS ULCERATIVE
     Dosage: 10 MG, 2X/DAY
     Route: 048
     Dates: start: 202009, end: 20201125

REACTIONS (7)
  - Illness [Recovering/Resolving]
  - Enteritis infectious [Unknown]
  - Feeling abnormal [Unknown]
  - White blood cell count increased [Recovering/Resolving]
  - Body temperature increased [Recovering/Resolving]
  - Defaecation urgency [Unknown]
  - Pain [Recovered/Resolved]

NARRATIVE: CASE EVENT DATE: 2020
